FAERS Safety Report 8138095-4 (Version None)
Quarter: 2012Q1

REPORT INFORMATION
  Report Type: 
  Country: None (occurrence: None)
  Receive Date: 20120215
  Receipt Date: 20120215
  Transmission Date: 20120608
  Serious: Yes (Disabling)
  Sender: FDA-Public Use
  Company Number: None

PATIENT
  Age: 46 Year
  Sex: Female
  Weight: 74.842 kg

DRUGS (3)
  1. LEVAQUIN [Suspect]
     Indication: DEVICE RELATED INFECTION
     Route: 048
     Dates: start: 20120101, end: 20120212
  2. LEVAQUIN [Suspect]
     Indication: POST PROCEDURAL INFECTION
     Route: 048
     Dates: start: 20120101, end: 20120212
  3. LEVAQUIN [Suspect]
     Indication: JAW OPERATION
     Route: 048
     Dates: start: 20120101, end: 20120212

REACTIONS (4)
  - ARTHRALGIA [None]
  - GAIT DISTURBANCE [None]
  - EPICONDYLITIS [None]
  - NO THERAPEUTIC RESPONSE [None]
